FAERS Safety Report 14170812 (Version 1)
Quarter: 2017Q4

REPORT INFORMATION
  Report Type: Spontaneous
  Country: US (occurrence: US)
  Receive Date: 20171108
  Receipt Date: 20171108
  Transmission Date: 20180321
  Serious: Yes (Other)
  Sender: FDA-Public Use
  Company Number: US-BRACCO-2017US04937

PATIENT
  Sex: Female

DRUGS (3)
  1. MULTIHANCE [Suspect]
     Active Substance: GADOBENATE DIMEGLUMINE
     Indication: NUCLEAR MAGNETIC RESONANCE IMAGING
     Dosage: UNK
  2. GADOLINIUM [Suspect]
     Active Substance: GADOLINIUM
     Indication: NUCLEAR MAGNETIC RESONANCE IMAGING
  3. OPTIMARK [Suspect]
     Active Substance: GADOVERSETAMIDE
     Indication: NUCLEAR MAGNETIC RESONANCE IMAGING

REACTIONS (11)
  - Gadolinium deposition disease [Unknown]
  - Immobile [Unknown]
  - Emotional distress [Unknown]
  - Sensory disturbance [Unknown]
  - Pain [Unknown]
  - Injury [Unknown]
  - Skin texture abnormal [Unknown]
  - Burning sensation [Unknown]
  - Gait disturbance [Unknown]
  - Cognitive disorder [Unknown]
  - Balance disorder [Unknown]
